FAERS Safety Report 14098767 (Version 1)
Quarter: 2017Q4

REPORT INFORMATION
  Report Type: Spontaneous
  Country: RU (occurrence: RU)
  Receive Date: 20171017
  Receipt Date: 20171017
  Transmission Date: 20180321
  Serious: Yes (Other)
  Sender: FDA-Public Use
  Company Number: RU-ROCHE-2006795

PATIENT
  Age: 46 Year
  Sex: Female

DRUGS (7)
  1. HERCEPTIN [Suspect]
     Active Substance: TRASTUZUMAB
     Dosage: HERCEPTIN + PACLITAXEL 80 MG / M2 IN WEEKLY REGIME
     Route: 042
     Dates: start: 201409, end: 201504
  2. GEMCITABINE [Concomitant]
     Active Substance: GEMCITABINE\GEMCITABINE HYDROCHLORIDE
     Indication: BREAST CANCER
     Dosage: 7 COURSES: HERCEPTIN + GEMCITABINE +NAVELBIN
     Route: 065
     Dates: start: 201403, end: 201408
  3. HERCEPTIN [Suspect]
     Active Substance: TRASTUZUMAB
     Dosage: 6 COURSES: HERCEPTIN + EU(EPIRUBICIN+CYCLOPHOSPHAN
     Route: 042
     Dates: start: 201510, end: 201604
  4. CAPECITABINE. [Concomitant]
     Active Substance: CAPECITABINE
     Indication: BREAST CANCER
     Dosage: 5 COURSES: LAPATINIB 1250 MG / DAY + CAPECITABINE 1000 MG / M2 X 2 TIMES A DAY 14 DAYS
     Route: 065
     Dates: start: 201505, end: 201509
  5. NAVELBIN [Concomitant]
     Active Substance: VINORELBINE TARTRATE
     Indication: BREAST CANCER
     Dosage: 7 COURSES: HERCEPTIN + GEMCITABINE +NAVELBIN
     Route: 065
     Dates: start: 201403, end: 201408
  6. HERCEPTIN [Suspect]
     Active Substance: TRASTUZUMAB
     Indication: BREAST CANCER
     Dosage: INJECTIONS.?7 COURSES: HERCEPTIN + GEMCITABINE +NAVELBIN
     Route: 042
     Dates: start: 201403, end: 201408
  7. LAPATINIB [Concomitant]
     Active Substance: LAPATINIB
     Indication: BREAST CANCER
     Dosage: 5 COURSES: LAPATINIB 1250 MG / DAY + CAPECITABINE 1000 MG / M2 X 2 TIMES A DAY 14 DAYS
     Route: 065
     Dates: start: 201505, end: 201509

REACTIONS (6)
  - Vomiting [Unknown]
  - Asthenia [Unknown]
  - Phlebitis [Unknown]
  - Nausea [Unknown]
  - Neutropenia [Unknown]
  - Polyneuropathy [Unknown]

NARRATIVE: CASE EVENT DATE: 201403
